FAERS Safety Report 8156490-4 (Version None)
Quarter: 2012Q1

REPORT INFORMATION
  Report Type: 
  Country: None (occurrence: None)
  Receive Date: 20120222
  Receipt Date: 20120213
  Transmission Date: 20120608
  Serious: Yes (Hospitalization, Other)
  Sender: FDA-Public Use
  Company Number: US-BAYER-2011-073684

PATIENT
  Age: 34 Year
  Sex: Female
  Weight: 84 kg

DRUGS (6)
  1. YAZ [Suspect]
     Indication: MENSTRUATION IRREGULAR
     Dosage: UNK
     Dates: start: 20090416, end: 20100130
  2. YAZ [Suspect]
     Indication: MOOD SWINGS
  3. NAPROXEN [Concomitant]
  4. FLEXERIL [Concomitant]
  5. COUMADIN [Concomitant]
  6. IBUPROFEN TABLETS [Concomitant]

REACTIONS (4)
  - PULMONARY EMBOLISM [None]
  - INJURY [None]
  - THROMBOSIS [None]
  - PLEURAL EFFUSION [None]
